FAERS Safety Report 10706887 (Version 5)
Quarter: 2015Q2

REPORT INFORMATION
  Report Type: Spontaneous
  Country: US (occurrence: US)
  Receive Date: 20150113
  Receipt Date: 20150423
  Transmission Date: 20150821
  Serious: Yes (Death, Hospitalization, Other)
  Sender: FDA-Public Use
  Company Number: US-MERCK-1501USA003325

PATIENT
  Sex: Female
  Weight: 77.98 kg

DRUGS (2)
  1. JANUVIA [Suspect]
     Active Substance: SITAGLIPTIN PHOSPHATE
     Indication: TYPE 2 DIABETES MELLITUS
     Dosage: 100 MG, QD
     Route: 048
     Dates: end: 20140108
  2. JANUMET [Suspect]
     Active Substance: METFORMIN HYDROCHLORIDE\SITAGLIPTIN PHOSPHATE
     Indication: TYPE 2 DIABETES MELLITUS
     Dosage: 50/500 MG, QD
     Route: 048
     Dates: start: 20070724, end: 200708

REACTIONS (42)
  - Pancreatic carcinoma metastatic [Fatal]
  - Vision blurred [Unknown]
  - Diverticulum intestinal [Unknown]
  - Pneumobilia [Unknown]
  - Fall [Unknown]
  - Face injury [Unknown]
  - Fatigue [Unknown]
  - Gastrooesophageal reflux disease [Unknown]
  - Anxiety disorder [Unknown]
  - Sleep apnoea syndrome [Unknown]
  - Metastases to lymph nodes [Unknown]
  - Essential hypertension [Unknown]
  - Bile duct stent insertion [Unknown]
  - Post procedural complication [Unknown]
  - Lung disorder [Unknown]
  - Portal vein thrombosis [Unknown]
  - Inappropriate schedule of drug administration [Unknown]
  - Metastases to lung [Unknown]
  - Pneumonia [Unknown]
  - Atelectasis [Unknown]
  - Pain [Unknown]
  - Renal cyst [Unknown]
  - Gastric disorder [Unknown]
  - Urinary tract infection [Unknown]
  - Myalgia [Unknown]
  - Metastases to pleura [Unknown]
  - Pulmonary embolism [Unknown]
  - Atelectasis [Unknown]
  - Drug ineffective [Unknown]
  - Spinal osteoarthritis [Unknown]
  - Spinal column injury [Unknown]
  - Vitamin B12 deficiency [Unknown]
  - Drug ineffective [Unknown]
  - Metastases to lymph nodes [Unknown]
  - Pleural effusion [Unknown]
  - Balance disorder [Recovered/Resolved]
  - Skin lesion [Unknown]
  - Back pain [Unknown]
  - Lymphangiosis carcinomatosa [Unknown]
  - Aortic arteriosclerosis [Unknown]
  - Arteriosclerosis coronary artery [Unknown]
  - Depression [Unknown]

NARRATIVE: CASE EVENT DATE: 20070207
